FAERS Safety Report 8891449 (Version 1)
Quarter: 2012Q4

REPORT INFORMATION
  Report Type: Spontaneous
  Country: US (occurrence: None)
  Receive Date: 20121106
  Receipt Date: 20121106
  Transmission Date: 20130627
  Serious: Yes (Other)
  Sender: FDA-Public Use
  Company Number: 2011245840

PATIENT
  Age: 31 Year
  Sex: Male
  Weight: 87.1 kg

DRUGS (1)
  1. FRAGMIN (DALTEPARIN SODIUM) SOLUTION FOR INJECTION [Suspect]
     Route: 058
     Dates: start: 20110110, end: 20110119

REACTIONS (2)
  - Pulmonary embolism [None]
  - Treatment failure [None]
